FAERS Safety Report 7253274-6 (Version None)
Quarter: 2011Q1

REPORT INFORMATION
  Report Type: 
  Country: None (occurrence: None)
  Receive Date: 20110129
  Receipt Date: 20100212
  Transmission Date: 20110831
  Serious: No
  Sender: FDA-Public Use
  Company Number: US-ABBOTT-10P-163-0626719-00

PATIENT
  Sex: Female
  Weight: 104.42 kg

DRUGS (3)
  1. HUMIRA [Suspect]
     Dates: start: 20100201
  2. HUMIRA [Suspect]
     Dates: start: 20100128, end: 20100128
  3. HUMIRA [Suspect]
     Indication: CROHN'S DISEASE
     Dates: start: 20100114, end: 20100114

REACTIONS (1)
  - ANKLE FRACTURE [None]
